FAERS Safety Report 19736530 (Version 2)
Quarter: 2021Q4

REPORT INFORMATION
  Report Type: Spontaneous
  Country: US (occurrence: US)
  Receive Date: 20210824
  Receipt Date: 20211001
  Transmission Date: 20220303
  Serious: Yes (Other)
  Sender: FDA-Public Use
  Company Number: 2021A685328

PATIENT
  Age: 60 Year
  Sex: Female
  Weight: 61.7 kg

DRUGS (1)
  1. FASENRA [Suspect]
     Active Substance: BENRALIZUMAB
     Indication: Asthma
     Dosage: 30MG/ML EVERY EIGHT WEEKS
     Route: 058

REACTIONS (11)
  - Oxygen saturation decreased [Recovered/Resolved]
  - COVID-19 [Unknown]
  - Dyspnoea [Unknown]
  - Bradykinesia [Unknown]
  - Fatigue [Recovered/Resolved]
  - Feeling abnormal [Recovered/Resolved]
  - Speech disorder [Recovered/Resolved]
  - Pulmonary function test decreased [Unknown]
  - Asthma [Unknown]
  - Feeling abnormal [Recovered/Resolved]
  - Product dose omission issue [Unknown]

NARRATIVE: CASE EVENT DATE: 20200101
